FAERS Safety Report 4903309-8 (Version None)
Quarter: 2006Q1

REPORT INFORMATION
  Report Type: 
  Country: None (occurrence: None)
  Receive Date: 20060203
  Receipt Date: 20060203
  Transmission Date: 20060701
  Serious: No
  Sender: FDA-Public Use
  Company Number: None

PATIENT
  Age: 81 Year
  Sex: Female

DRUGS (1)
  1. MACRODANTIN [Suspect]
     Dates: start: 20001211, end: 20050114

REACTIONS (6)
  - ANTINUCLEAR ANTIBODY POSITIVE [None]
  - ELECTROPHORESIS PROTEIN ABNORMAL [None]
  - FATIGUE [None]
  - GLOBULINS INCREASED [None]
  - LIVER FUNCTION TEST ABNORMAL [None]
  - RED BLOOD CELL SEDIMENTATION RATE INCREASED [None]
